FAERS Safety Report 16315971 (Version 2)
Quarter: 2020Q1

REPORT INFORMATION
  Report Type: Spontaneous
  Country: US (occurrence: US)
  Receive Date: 20190515
  Receipt Date: 20200226
  Transmission Date: 20200409
  Serious: No
  Sender: FDA-Public Use
  Company Number: US-SA-2019SA126586

PATIENT
  Age: 15 Year
  Sex: Male

DRUGS (2)
  1. DUPIXENT [Suspect]
     Active Substance: DUPILUMAB
     Indication: ASTHMA
     Dosage: 300 MG, BID
     Route: 058
     Dates: start: 20190419, end: 20190419
  2. DUPIXENT [Suspect]
     Active Substance: DUPILUMAB
     Dosage: 300 MG, QOW
     Route: 058
     Dates: start: 2019

REACTIONS (3)
  - Pruritus [Recovered/Resolved]
  - Product prescribing error [Unknown]
  - Rash erythematous [Recovered/Resolved]

NARRATIVE: CASE EVENT DATE: 20190419
